FAERS Safety Report 6715296-0 (Version None)
Quarter: 2010Q2

REPORT INFORMATION
  Report Type: 
  Country: None (occurrence: None)
  Receive Date: 20100507
  Receipt Date: 20100427
  Transmission Date: 20101027
  Serious: Yes (Hospitalization, Other)
  Sender: FDA-Public Use
  Company Number: CA-PFIZER INC-2010042770

PATIENT
  Age: 60 Year
  Sex: Female

DRUGS (6)
  1. ZELDOX [Suspect]
     Indication: PSYCHOTIC DISORDER
     Dosage: 40 MG, 2X/DAY
     Route: 048
     Dates: start: 20100304, end: 20100101
  2. ZELDOX [Suspect]
     Dosage: 60 MG, 2X/DAY
     Dates: start: 20100304, end: 20100101
  3. SEROQUEL [Suspect]
     Indication: PSYCHOTIC DISORDER
     Dosage: 300 MG, UNK
  4. SEROQUEL [Suspect]
     Dosage: 600 MG, 1X/DAY AT BEDTIME
     Route: 048
  5. CLONAZEPAM [Concomitant]
     Indication: ANXIETY
     Dosage: 0.5 MG, 2X/DAY
  6. LOXAPINE [Concomitant]
     Indication: PSYCHOTIC DISORDER
     Dosage: 25 MG, AS NEEDED

REACTIONS (5)
  - AGITATION [None]
  - DEPRESSION [None]
  - HALLUCINATION, AUDITORY [None]
  - PSYCHOTIC DISORDER [None]
  - SUICIDAL IDEATION [None]
